FAERS Safety Report 6217800-8 (Version None)
Quarter: 2009Q2

REPORT INFORMATION
  Report Type: 
  Country: None (occurrence: None)
  Receive Date: 20090608
  Receipt Date: 20090528
  Transmission Date: 20091009
  Serious: Yes (Hospitalization)
  Sender: FDA-Public Use
  Company Number: US-BAYER-200921931NA

PATIENT
  Age: 73 Year
  Sex: Female
  Weight: 85 kg

DRUGS (9)
  1. SORAFENIB [Suspect]
     Indication: RENAL CELL CARCINOMA
     Dosage: TOTAL DAILY DOSE: 400 MG  UNIT DOSE: 200 MG
     Route: 048
     Dates: start: 20090527
  2. SORAFENIB [Suspect]
     Dosage: TOTAL DAILY DOSE: 800 MG  UNIT DOSE: 200 MG
     Route: 048
     Dates: start: 20090424, end: 20090502
  3. PROTONIX [Concomitant]
     Dates: start: 20080813
  4. GLIPIZIDE [Concomitant]
     Dates: start: 20060201
  5. COREG [Concomitant]
     Dates: start: 20071001
  6. CRESTOR [Concomitant]
     Dates: start: 20060801
  7. DIOVAN [Concomitant]
     Dates: start: 20060801
  8. LANTUS [Concomitant]
     Dates: start: 20070801
  9. GLUCOPHAGE [Concomitant]
     Dates: start: 20000101

REACTIONS (4)
  - BODY TEMPERATURE INCREASED [None]
  - HYPOTENSION [None]
  - PYREXIA [None]
  - RASH [None]
